FAERS Safety Report 10480943 (Version 2)
Quarter: 2014Q4

REPORT INFORMATION
  Report Type: Spontaneous
  Country: JP (occurrence: JP)
  Receive Date: 20140929
  Receipt Date: 20141020
  Transmission Date: 20150528
  Serious: Yes (Hospitalization)
  Sender: FDA-Public Use
  Company Number: JP-MYLANLABS-2014M1005562

PATIENT

DRUGS (7)
  1. DICLOFENAC [Concomitant]
     Active Substance: DICLOFENAC
     Route: 065
  2. LANSOPRAZOLE. [Concomitant]
     Active Substance: LANSOPRAZOLE
     Route: 065
  3. METHOTREXATE SODIUM. [Suspect]
     Active Substance: METHOTREXATE SODIUM
     Dosage: 6 MG, QW
     Route: 065
  4. PREDNISOLONE. [Concomitant]
     Active Substance: PREDNISOLONE
     Dosage: 5 MG, QD
     Route: 065
  5. FOLIC ACID. [Concomitant]
     Active Substance: FOLIC ACID
     Dosage: 5 MG, QW
     Route: 065
  6. RISEDRONIC ACID [Concomitant]
     Active Substance: RISEDRONIC ACID
     Route: 065
  7. CANDESARTAN CILEXETIL. [Concomitant]
     Active Substance: CANDESARTAN CILEXETIL
     Route: 065

REACTIONS (2)
  - Angiocentric lymphoma [Recovered/Resolved]
  - Meningitis aseptic [Recovered/Resolved]
